FAERS Safety Report 16233038 (Version 1)
Quarter: 2019Q2

REPORT INFORMATION
  Report Type: Spontaneous
  Country: US (occurrence: US)
  Receive Date: 20190424
  Receipt Date: 20190424
  Transmission Date: 20190711
  Serious: Yes (Hospitalization)
  Sender: FDA-Public Use
  Company Number: US-PFIZER INC-2484755

PATIENT
  Age: 57 Year
  Sex: Female

DRUGS (6)
  1. PHENYTOIN. [Suspect]
     Active Substance: PHENYTOIN
     Indication: GENERALISED TONIC-CLONIC SEIZURE
     Dosage: 8900 MG, FREQ: TOTAL
     Route: 042
  2. VALPROIC ACID. [Concomitant]
     Active Substance: VALPROIC ACID
     Indication: GENERALISED TONIC-CLONIC SEIZURE
     Dosage: NOT REPORTED
  3. PHENOBARBITAL. [Suspect]
     Active Substance: PHENOBARBITAL
     Indication: GENERALISED TONIC-CLONIC SEIZURE
     Dosage: 3900 MG, FREQ: TOTAL
     Route: 041
  4. LACOSAMIDE. [Concomitant]
     Active Substance: LACOSAMIDE
     Indication: GENERALISED TONIC-CLONIC SEIZURE
     Dosage: NOT REPORTED
     Route: 042
  5. LEVETIRACETAM. [Concomitant]
     Active Substance: LEVETIRACETAM
     Indication: GENERALISED TONIC-CLONIC SEIZURE
     Dosage: NOT REPORTED
  6. PROPOFOL. [Concomitant]
     Active Substance: PROPOFOL
     Indication: GENERALISED TONIC-CLONIC SEIZURE
     Dosage: NOT REPORTED
     Route: 042

REACTIONS (3)
  - Toxicity to various agents [Recovered/Resolved]
  - Osmolar gap [Recovered/Resolved]
  - Metabolic acidosis [Recovered/Resolved]
